FAERS Safety Report 19744240 (Version 2)
Quarter: 2021Q3

REPORT INFORMATION
  Report Type: Spontaneous
  Country: US (occurrence: US)
  Receive Date: 20210825
  Receipt Date: 20210908
  Transmission Date: 20211014
  Serious: No
  Sender: FDA-Public Use
  Company Number: NVSC2021US191913

PATIENT
  Sex: Male

DRUGS (1)
  1. TAFINLAR [Suspect]
     Active Substance: DABRAFENIB MESYLATE
     Indication: LANGERHANS^ CELL HISTIOCYTOSIS
     Dosage: 75 MG, BID
     Route: 048
     Dates: start: 20210729

REACTIONS (3)
  - Hypersensitivity [Unknown]
  - Blister [Unknown]
  - Off label use [Unknown]
